FAERS Safety Report 6240466-8 (Version None)
Quarter: 2009Q2

REPORT INFORMATION
  Report Type: 
  Country: None (occurrence: None)
  Receive Date: 20090623
  Receipt Date: 20090310
  Transmission Date: 20091009
  Serious: No
  Sender: FDA-Public Use
  Company Number: US-ASTRAZENECA-2009UW06259

PATIENT
  Age: 76 Year
  Sex: Female

DRUGS (5)
  1. PULMICORT-100 [Suspect]
     Route: 055
  2. BROVANA [Concomitant]
     Indication: ASTHMA
  3. IPRATROPIUM BROMIDE [Concomitant]
  4. SINGULAIR [Concomitant]
  5. CHOLESTIPOL [Concomitant]

REACTIONS (1)
  - ALOPECIA [None]
